FAERS Safety Report 5907030-9 (Version None)
Quarter: 2008Q4

REPORT INFORMATION
  Report Type: 
  Country: None (occurrence: None)
  Receive Date: 20081003
  Receipt Date: 20080930
  Transmission Date: 20090506
  Serious: Yes (Hospitalization)
  Sender: FDA-Public Use
  Company Number: FR-BRISTOL-MYERS SQUIBB COMPANY-14354179

PATIENT
  Age: 82 Year
  Sex: Male

DRUGS (10)
  1. APROVEL TABS 150 MG [Suspect]
     Dates: start: 20060301, end: 20080513
  2. ALLOPURINOL [Suspect]
     Dates: end: 20080506
  3. CORDARONE [Concomitant]
     Dates: start: 20080301
  4. DIFFU-K [Concomitant]
     Dates: start: 20060301
  5. LASIX [Concomitant]
     Dosage: LASILIX SPECIAL 500 MG
  6. SINTROM [Concomitant]
  7. OROKEN [Concomitant]
     Dates: start: 20080401, end: 20080401
  8. MUCOMYST [Concomitant]
     Dates: start: 20080401, end: 20080401
  9. ACETAMINOPHEN [Concomitant]
     Dates: start: 20080401, end: 20080401
  10. BIOCALYPTOL [Concomitant]
     Dates: start: 20080401, end: 20080401

REACTIONS (5)
  - CARDIAC FAILURE [None]
  - CHOLESTASIS [None]
  - HEPATOCELLULAR INJURY [None]
  - RENAL FAILURE [None]
  - TOXIC SKIN ERUPTION [None]
